FAERS Safety Report 9372390 (Version 1)
Quarter: 2013Q2

REPORT INFORMATION
  Report Type: Spontaneous
  Country: US (occurrence: None)
  Receive Date: 20130613
  Receipt Date: 20130613
  Transmission Date: 20140414
  Serious: Yes (Hospitalization)
  Sender: FDA-Public Use
  Company Number: M2013-014

PATIENT
  Age: 70 Year
  Sex: Female

DRUGS (3)
  1. PT MIX1 [Suspect]
     Indication: IMMUNE ENHANCEMENT THERAPY
     Dosage: 0.50 CC, INJECTION
     Dates: start: 20130111, end: 20130524
  2. PT MIX1 [Suspect]
     Indication: ANTIALLERGIC THERAPY
     Dosage: 0.50 CC, INJECTION
     Dates: start: 20130111, end: 20130524
  3. PT MIX 2 [Suspect]
     Dosage: 0.50 CC, INJECTION
     Dates: start: 20130111, end: 20130524

REACTIONS (4)
  - Anaphylactic reaction [None]
  - Dizziness [None]
  - Loss of consciousness [None]
  - Fall [None]
